FAERS Safety Report 13139842 (Version 1)
Quarter: 2017Q1

REPORT INFORMATION
  Report Type: Spontaneous
  Country: AU (occurrence: AU)
  Receive Date: 20170123
  Receipt Date: 20170123
  Transmission Date: 20170428
  Serious: Yes (Death)
  Sender: FDA-Public Use
  Company Number: AU-SA-2017SA010080

PATIENT
  Age: 47 Year
  Sex: Female
  Weight: 77 kg

DRUGS (6)
  1. LANTUS SOLOSTAR [Suspect]
     Active Substance: INSULIN GLARGINE
     Route: 065
     Dates: end: 20151124
  2. FLEXPEN [Concomitant]
     Active Substance: UNSPECIFIED INGREDIENT
     Dates: end: 20151124
  3. INSULIN [Suspect]
     Active Substance: INSULIN NOS
     Route: 065
     Dates: end: 20151124
  4. SOLOSTAR [Concomitant]
     Active Substance: DEVICE
     Dates: end: 20151124
  5. NOVORAPID [Suspect]
     Active Substance: INSULIN ASPART
     Route: 065
     Dates: end: 20151124
  6. JULIET-35 [Concomitant]
     Dates: end: 20151124

REACTIONS (2)
  - Completed suicide [Fatal]
  - Intentional overdose [Unknown]

NARRATIVE: CASE EVENT DATE: 20151124
